FAERS Safety Report 4860502-0 (Version None)
Quarter: 2005Q4

REPORT INFORMATION
  Report Type: 
  Country: None (occurrence: None)
  Receive Date: 20051219
  Receipt Date: 20051207
  Transmission Date: 20060501
  Serious: Yes (Death)
  Sender: FDA-Public Use
  Company Number: AU-NOVOPROD-249120

PATIENT
  Sex: Male

DRUGS (1)
  1. NOVOSEVEN [Suspect]
     Indication: TRAUMATIC HAEMORRHAGE

REACTIONS (2)
  - CONCOMITANT DISEASE PROGRESSION [None]
  - DEATH [None]
